FAERS Safety Report 5416349-X (Version None)
Quarter: 2007Q3

REPORT INFORMATION
  Report Type: 
  Country: None (occurrence: None)
  Receive Date: 20070816
  Receipt Date: 20070809
  Transmission Date: 20080115
  Serious: Yes (Hospitalization)
  Sender: FDA-Public Use
  Company Number: PHNU2007DE02799

PATIENT
  Age: 25 Year
  Sex: Female

DRUGS (3)
  1. EXJADE [Suspect]
     Indication: HAEMOSIDEROSIS
     Dates: start: 20061101
  2. DESFERAL [Suspect]
     Route: 065
     Dates: start: 20070701
  3. ACE INHIBITOR NOS [Concomitant]
     Route: 065

REACTIONS (4)
  - ANURIA [None]
  - BLOOD CREATININE INCREASED [None]
  - DIALYSIS [None]
  - RENAL FAILURE ACUTE [None]
